FAERS Safety Report 19476489 (Version 3)
Quarter: 2021Q3

REPORT INFORMATION
  Report Type: Spontaneous
  Country: US (occurrence: US)
  Receive Date: 20210630
  Receipt Date: 20210820
  Transmission Date: 20211014
  Serious: Yes (Other)
  Sender: FDA-Public Use
  Company Number: US-ORGANON-O2106USA002381

PATIENT
  Age: 44 Year
  Sex: Female
  Weight: 53.16 kg

DRUGS (2)
  1. NEXPLANON [Suspect]
     Active Substance: ETONOGESTREL
     Indication: CONTRACEPTION
     Dosage: 1 IMPLANT OF 68 MG IN LEFT UPPER ARM
     Route: 059
     Dates: start: 20210622, end: 20210622
  2. NEXPLANON [Suspect]
     Active Substance: ETONOGESTREL
     Indication: CONTRACEPTION
     Dosage: 1 IMPLANT
     Route: 059
     Dates: end: 20210622

REACTIONS (7)
  - Device dislocation [Recovered/Resolved]
  - Nerve injury [Recovering/Resolving]
  - Complication of device removal [Recovered/Resolved]
  - Hypotension [Recovering/Resolving]
  - Somnolence [Recovering/Resolving]
  - Product quality issue [Unknown]
  - Seizure [Recovered/Resolved]

NARRATIVE: CASE EVENT DATE: 20210622
